FAERS Safety Report 7527691-0 (Version None)
Quarter: 2011Q2

REPORT INFORMATION
  Report Type: 
  Country: None (occurrence: None)
  Receive Date: 20110607
  Receipt Date: 20110524
  Transmission Date: 20111010
  Serious: Yes (Other)
  Sender: FDA-Public Use
  Company Number: PHEH2007US09509

PATIENT
  Sex: Female
  Weight: 41.27 kg

DRUGS (22)
  1. FERROUS SULFATE TAB [Concomitant]
     Dosage: 325 MG, 1-2 TIMES DAILY
  2. FOSAMAX [Suspect]
     Indication: OSTEOPENIA
     Dosage: 10 MG, QD
     Dates: start: 19990101, end: 19990101
  3. LEVOXYL [Concomitant]
     Dosage: .025 MG, QD
     Route: 048
  4. FLEXERIL [Concomitant]
     Dosage: 10 MG, PRN
  5. ZOCOR [Concomitant]
     Indication: BLOOD CHOLESTEROL INCREASED
     Dosage: 40 MG, QD
  6. EPOGEN [Concomitant]
     Dosage: 30000 UNK, UNK
     Route: 058
  7. DURAGESIC-100 [Concomitant]
     Dosage: 50 UG, Q72H
  8. PROVENTIL [Concomitant]
     Indication: DYSPNOEA
     Dosage: UNK
  9. FLU ^LEDERLE^ [Concomitant]
     Dosage: 0.5 ML, UNK
     Route: 030
  10. ZOMETA [Suspect]
  11. CALCIUM W/VITAMIN D NOS [Concomitant]
  12. AREDIA [Suspect]
     Indication: OSTEOPOROSIS
     Dosage: 90 MG, QMO
     Route: 042
     Dates: start: 19991001, end: 20030801
  13. PROCRIT                            /00909301/ [Concomitant]
  14. METHADONE HCL [Concomitant]
     Dosage: 10-30MG PRN
  15. ZANAFLEX [Concomitant]
     Dosage: 2-4MG PRN
  16. CLONAZEPAM [Concomitant]
     Dosage: 2 MG, TID PRN
  17. EPIPEN [Concomitant]
     Indication: ARTHROPOD STING
     Dosage: 0.3 MG, PRN
  18. RELAFEN [Concomitant]
  19. CENTRUM [Concomitant]
     Dosage: 1 QD
  20. SYNTHROID [Concomitant]
     Dosage: 0.075 MG, UNK
  21. FIORICET [Concomitant]
     Indication: PAIN
     Dosage: 1-2 TABS PRN
     Route: 048
  22. COZAAR [Concomitant]
     Dosage: 50 MG, UNK

REACTIONS (32)
  - CALCIUM IONISED INCREASED [None]
  - RECTAL HAEMORRHAGE [None]
  - COLONIC POLYP [None]
  - HAEMORRHOIDS [None]
  - ANXIETY [None]
  - STOMATITIS [None]
  - SPINAL HAEMANGIOMA [None]
  - BONE SCAN ABNORMAL [None]
  - SCIATICA [None]
  - URINARY TRACT INFECTION [None]
  - VITAMIN D DEFICIENCY [None]
  - PAIN [None]
  - BONE LOSS [None]
  - X-RAY DENTAL [None]
  - OSTEONECROSIS OF JAW [None]
  - OROPHARYNGEAL PLAQUE [None]
  - HAEMOGLOBIN DECREASED [None]
  - DERMATITIS ALLERGIC [None]
  - NEURITIS [None]
  - NECK PAIN [None]
  - EXOSTOSIS [None]
  - BLOOD CALCIUM INCREASED [None]
  - BACK PAIN [None]
  - HEADACHE [None]
  - DENTAL FISTULA [None]
  - MOUTH ULCERATION [None]
  - BONE DISORDER [None]
  - PERIODONTITIS [None]
  - DENTAL CARIES [None]
  - SPINAL DISORDER [None]
  - HAEMATURIA [None]
  - OROPHARYNGEAL PAIN [None]
